FAERS Safety Report 7559342-3 (Version None)
Quarter: 2011Q2

REPORT INFORMATION
  Report Type: 
  Country: None (occurrence: None)
  Receive Date: 20110617
  Receipt Date: 20110617
  Transmission Date: 20111010
  Serious: Yes (Hospitalization)
  Sender: FDA-Public Use
  Company Number: None

PATIENT
  Sex: Female
  Weight: 84.2 kg

DRUGS (2)
  1. DOXORUBICIN HYDROCHLORIDE [Suspect]
     Dosage: 115 MG
     Dates: end: 20110601
  2. CYCLOPHOSPHAMIDE [Suspect]
     Dosage: 1140 MG
     Dates: end: 20110601

REACTIONS (2)
  - FEBRILE NEUTROPENIA [None]
  - TENDERNESS [None]
